FAERS Safety Report 5920949-8 (Version None)
Quarter: 2008Q4

REPORT INFORMATION
  Report Type: 
  Country: None (occurrence: None)
  Receive Date: 20081016
  Receipt Date: 20081009
  Transmission Date: 20090506
  Serious: Yes (Other)
  Sender: FDA-Public Use
  Company Number: ES-JNJFOC-20081002616

PATIENT
  Age: 32 Year
  Sex: Female

DRUGS (2)
  1. ORTHO EVRA [Suspect]
     Indication: CONTRACEPTION
     Route: 062
  2. DEPRAX [Concomitant]
     Indication: DEPRESSION

REACTIONS (3)
  - ANGER [None]
  - DEPRESSED MOOD [None]
  - SUICIDAL IDEATION [None]
